FAERS Safety Report 9887793 (Version 2)
Quarter: 2014Q1

REPORT INFORMATION
  Report Type: Report from Study
  Country: DE (occurrence: DE)
  Receive Date: 20140211
  Receipt Date: 20140211
  Transmission Date: 20141002
  Serious: Yes (Life-Threatening, Hospitalization, Other)
  Sender: FDA-Public Use
  Company Number: DE-SANOFI-AVENTIS-2010SA003344

PATIENT
  Age: 45 Year
  Sex: Female
  Weight: 104 kg

DRUGS (7)
  1. TERIFLUNOMIDE [Suspect]
     Indication: MULTIPLE SCLEROSIS RELAPSE
     Route: 048
     Dates: start: 20091201
  2. VENLAFAXINE [Concomitant]
     Route: 048
     Dates: start: 20091019, end: 20091130
  3. VENLAFAXINE [Concomitant]
     Route: 048
     Dates: start: 20091201
  4. METOPROLOL [Concomitant]
     Route: 048
     Dates: start: 2005
  5. RAMIPRIL [Concomitant]
     Route: 048
     Dates: start: 2005
  6. CERAZETTE [Concomitant]
     Route: 048
  7. NEURALGIN /GFR/ [Concomitant]
     Dosage: 250 + 200 + 50 MG
     Route: 048
     Dates: start: 20091124

REACTIONS (3)
  - Appendicitis [Recovered/Resolved]
  - Appendiceal abscess [Recovered/Resolved]
  - Peritonitis [Recovered/Resolved]
